FAERS Safety Report 23240745 (Version 1)
Quarter: 2023Q4

REPORT INFORMATION
  Report Type: Spontaneous
  Country: US (occurrence: US)
  Receive Date: 20231129
  Receipt Date: 20231129
  Transmission Date: 20240110
  Serious: Yes (Other)
  Sender: FDA-Public Use
  Company Number: US-ABBVIE-5517039

PATIENT
  Age: 62 Year
  Sex: Male

DRUGS (8)
  1. PREDNISOLONE [Suspect]
     Active Substance: PREDNISOLONE
     Indication: Burkholderia cepacia complex infection
     Route: 061
  2. TRIAMCINOLONE [Suspect]
     Active Substance: TRIAMCINOLONE
     Indication: Burkholderia cepacia complex infection
     Route: 050
  3. VANCOMYCIN [Suspect]
     Active Substance: VANCOMYCIN
     Indication: Burkholderia cepacia complex infection
     Dosage: DOSAGE: 50 MG/ML
     Route: 061
  4. TOBRAMYCIN [Suspect]
     Active Substance: TOBRAMYCIN
     Indication: Burkholderia cepacia complex infection
     Dosage: DOSAGE: 14 MG/ML
     Route: 061
  5. MOXIFLOXACIN [Suspect]
     Active Substance: MOXIFLOXACIN
     Indication: Burkholderia cepacia complex infection
     Route: 061
  6. LEVOFLOXACIN [Concomitant]
     Active Substance: LEVOFLOXACIN
     Indication: Burkholderia cepacia complex infection
     Route: 048
  7. CIPROFLOXACIN [Concomitant]
     Active Substance: CIPROFLOXACIN
     Indication: Burkholderia cepacia complex infection
     Route: 048
  8. PREDNISOLONE [Concomitant]
     Active Substance: PREDNISOLONE
     Indication: Burkholderia cepacia complex infection
     Route: 048

REACTIONS (2)
  - Endophthalmitis [Unknown]
  - Off label use [Unknown]
